FAERS Safety Report 7584055-1 (Version None)
Quarter: 2011Q2

REPORT INFORMATION
  Report Type: 
  Country: None (occurrence: None)
  Receive Date: 20110531
  Receipt Date: 20100810
  Transmission Date: 20111010
  Serious: Yes (Other)
  Sender: FDA-Public Use
  Company Number: 312976

PATIENT
  Age: 72 Year
  Sex: Female

DRUGS (1)
  1. VAGIFEM [Suspect]
     Indication: HORMONE THERAPY
     Dosage: 1 - 2 TAB, PER WEEK, VAGINAL
     Route: 067

REACTIONS (1)
  - ENDOMETRIAL CANCER [None]
